FAERS Safety Report 5478714-4 (Version None)
Quarter: 2007Q4

REPORT INFORMATION
  Report Type: 
  Country: None (occurrence: None)
  Receive Date: 20071005
  Receipt Date: 20071004
  Transmission Date: 20080405
  Serious: Yes (Death, Hospitalization)
  Sender: FDA-Public Use
  Company Number: JP-BOEHRINGER INGELHEIM PHARMACEUTICALS, INC.-2007-BP-20906NB

PATIENT
  Sex: Male

DRUGS (10)
  1. MICARDIS [Suspect]
     Indication: HYPERTENSION
     Route: 048
     Dates: start: 20060831, end: 20070603
  2. FAMOTIDINE [Concomitant]
     Indication: GASTRIC ULCER
     Route: 048
     Dates: end: 20070603
  3. UNIPHYL LA (THEOPHYLLINE) [Concomitant]
     Indication: ASTHMA
     Route: 048
     Dates: end: 20070603
  4. MUCOSOLVAN L [Concomitant]
     Indication: ASTHMA
     Route: 048
     Dates: end: 20070603
  5. RESPLEN [Concomitant]
     Indication: ASTHMA
     Route: 048
     Dates: end: 20070603
  6. HERBESSER R [Concomitant]
     Indication: ANGINA PECTORIS
     Route: 048
     Dates: end: 20070603
  7. ASPIRIN [Concomitant]
     Indication: MYOCARDIAL INFARCTION
     Route: 048
     Dates: end: 20070603
  8. BASEN OD (VOGLIBOSE) [Concomitant]
     Indication: DIABETES MELLITUS
     Route: 048
     Dates: end: 20070603
  9. TICLOPIDINE HCL [Concomitant]
     Indication: CEREBRAL INFARCTION
     Route: 048
     Dates: end: 20070603
  10. MUCODYNE [Concomitant]
     Indication: ASTHMA
     Route: 048
     Dates: end: 20070603

REACTIONS (2)
  - ARTERIOSCLEROSIS OBLITERANS [None]
  - PULMONARY ALVEOLAR HAEMORRHAGE [None]
